FAERS Safety Report 15828491 (Version 1)
Quarter: 2019Q1

REPORT INFORMATION
  Report Type: Spontaneous
  Country: US (occurrence: US)
  Receive Date: 20190115
  Receipt Date: 20190115
  Transmission Date: 20190417
  Serious: No
  Sender: FDA-Public Use
  Company Number: US-ALLERGAN-1810275US

PATIENT
  Age: 47 Year
  Sex: Female
  Weight: 54.42 kg

DRUGS (3)
  1. RESTASIS [Suspect]
     Active Substance: CYCLOSPORINE
     Indication: DRY EYE
     Dosage: 2 GTT, BID
     Route: 047
     Dates: start: 201802
  2. PREDNISOLONE. [Concomitant]
     Active Substance: PREDNISOLONE
     Indication: DRY EYE
     Dosage: 2 GTT, BID
     Route: 047
  3. RENU [Concomitant]
     Indication: DRY EYE
     Dosage: UNK UNK, PRN
     Route: 047

REACTIONS (3)
  - Accidental exposure to product [Unknown]
  - Incorrect dose administered [Unknown]
  - Product dropper issue [Unknown]

NARRATIVE: CASE EVENT DATE: 201802
